FAERS Safety Report 4415876-1 (Version None)
Quarter: 2004Q3

REPORT INFORMATION
  Report Type: 
  Country: None (occurrence: None)
  Receive Date: 20040805
  Receipt Date: 20040420
  Transmission Date: 20050211
  Serious: No
  Sender: FDA-Public Use
  Company Number: US-GLAXOSMITHKLINE-A0507675A

PATIENT
  Age: 68 Year
  Sex: Female

DRUGS (4)
  1. AVANDAMET [Suspect]
     Dosage: 2MG TWICE PER DAY
     Route: 048
     Dates: start: 20040413, end: 20040419
  2. DILANTIN [Concomitant]
  3. TENORMIN [Concomitant]
  4. HYDROCHLOROTHIAZIDE [Concomitant]

REACTIONS (4)
  - DIZZINESS [None]
  - MUSCLE CRAMP [None]
  - PARAESTHESIA [None]
  - TINNITUS [None]
